FAERS Safety Report 8376415-6 (Version None)
Quarter: 2012Q2

REPORT INFORMATION
  Report Type: 
  Country: None (occurrence: None)
  Receive Date: 20120522
  Receipt Date: 20120521
  Transmission Date: 20120825
  Serious: Yes (Hospitalization)
  Sender: FDA-Public Use
  Company Number: PHHY2012BE030711

PATIENT
  Sex: Female
  Weight: 47 kg

DRUGS (5)
  1. ESCITALOPRAM OXALATE [Concomitant]
     Indication: DEPRESSION
     Dosage: UNK UKN, UNK
     Dates: start: 20120301
  2. ORAL CONTRACEPTIVE NOS [Concomitant]
     Dosage: UNK UKN, UNK
  3. ACETAMINOPHEN [Concomitant]
     Indication: ABDOMINAL PAIN
     Dosage: UNK UKN, UNK
  4. GILENYA [Suspect]
     Indication: MULTIPLE SCLEROSIS
     Dosage: 0.5 MG, QD
     Route: 048
     Dates: start: 20120319, end: 20120411
  5. VITAMIN D [Concomitant]
     Dosage: UNK UKN, UNK

REACTIONS (3)
  - MATERNAL EXPOSURE DURING PREGNANCY [None]
  - VAGINAL HAEMORRHAGE [None]
  - PLACENTAL DISORDER [None]
